FAERS Safety Report 5534660-9 (Version None)
Quarter: 2007Q4

REPORT INFORMATION
  Report Type: 
  Country: None (occurrence: None)
  Receive Date: 20071205
  Receipt Date: 20071128
  Transmission Date: 20080405
  Serious: Yes (Other)
  Sender: FDA-Public Use
  Company Number: US-JNJFOC-20071111001

PATIENT
  Sex: Female
  Weight: 45.36 kg

DRUGS (5)
  1. TOPAMAX [Suspect]
     Indication: COMPLEX REGIONAL PAIN SYNDROME
  2. BACLOFEN [Concomitant]
     Indication: COMPLEX REGIONAL PAIN SYNDROME
     Route: 048
  3. CYMBALTA [Concomitant]
     Indication: NEURALGIA
     Route: 048
  4. VALTREX [Concomitant]
     Indication: HERPES VIRUS INFECTION
     Route: 048
  5. COLACE [Concomitant]
     Indication: ABNORMAL FAECES
     Route: 048

REACTIONS (3)
  - BLOOD CHOLESTEROL INCREASED [None]
  - COMPLEX REGIONAL PAIN SYNDROME [None]
  - HYSTERECTOMY [None]
